FAERS Safety Report 10044388 (Version 4)
Quarter: 2014Q2

REPORT INFORMATION
  Report Type: Spontaneous
  Country: CA (occurrence: CA)
  Receive Date: 20140328
  Receipt Date: 20140605
  Transmission Date: 20141212
  Serious: Yes (Other)
  Sender: FDA-Public Use
  Company Number: CA-SA-2014SA038563

PATIENT
  Age: 54 Year
  Sex: Male
  Weight: 87.5 kg

DRUGS (9)
  1. FABRAZYME [Suspect]
     Indication: FABRY^S DISEASE
     Route: 042
     Dates: start: 2010
  2. SALBUTAMOL [Concomitant]
  3. PHENYTOIN [Concomitant]
     Route: 048
  4. CLOPIDOGREL [Concomitant]
     Route: 048
  5. ATORVASTATIN [Concomitant]
     Route: 048
  6. CANDESARTAN [Concomitant]
     Route: 048
  7. FLUTICASONE [Concomitant]
  8. TRIMEBUTINE [Concomitant]
     Route: 048
  9. FOLIC ACID [Concomitant]
     Route: 048

REACTIONS (4)
  - Haemorrhage [Recovered/Resolved]
  - Fall [Recovered/Resolved]
  - Contusion [Recovered/Resolved]
  - Skin abrasion [Recovered/Resolved]
